FAERS Safety Report 8486680-2 (Version None)
Quarter: 2012Q3

REPORT INFORMATION
  Report Type: 
  Country: None (occurrence: None)
  Receive Date: 20120703
  Receipt Date: 20120626
  Transmission Date: 20120928
  Serious: No
  Sender: FDA-Public Use
  Company Number: IT-BRISTOL-MYERS SQUIBB COMPANY-16238297

PATIENT
  Age: 82 Year
  Sex: Female

DRUGS (4)
  1. ENALAPRIL MALEATE [Concomitant]
  2. LANOXIN [Concomitant]
     Dosage: 1 UNITS
  3. COUMADIN [Suspect]
     Indication: ATRIAL FIBRILLATION
     Dosage: 1 DF = 1 UNITS INTERRUPTED ON 29OCT2011
     Route: 048
     Dates: start: 20110801
  4. LASIX [Concomitant]
     Dosage: 2 UNITS

REACTIONS (1)
  - INTERNATIONAL NORMALISED RATIO INCREASED [None]
